FAERS Safety Report 4896818-1 (Version None)
Quarter: 2005Q4

REPORT INFORMATION
  Report Type: 
  Country: None (occurrence: None)
  Receive Date: 20051228
  Receipt Date: 20051017
  Transmission Date: 20060501
  Serious: Yes (Disabling, Other)
  Sender: FDA-Public Use
  Company Number: USA0510110998

PATIENT
  Age: 40 Year
  Sex: Female

DRUGS (4)
  1. HUMULIN R [Suspect]
     Dates: end: 19980101
  2. HUMULIN N [Suspect]
     Dates: end: 19980101
  3. HUMALOG [Suspect]
     Dates: start: 19980101
  4. HUMULIN U [Suspect]

REACTIONS (2)
  - BLINDNESS [None]
  - RETINOPATHY [None]
